FAERS Safety Report 17590052 (Version 1)
Quarter: 2020Q1

REPORT INFORMATION
  Report Type: Spontaneous
  Country: US (occurrence: US)
  Receive Date: 20200326
  Receipt Date: 20200326
  Transmission Date: 20200409
  Serious: Yes (Hospitalization)
  Sender: FDA-Public Use
  Company Number: None

PATIENT
  Sex: Male

DRUGS (1)
  1. BAVENCIO [Suspect]
     Active Substance: AVELUMAB
     Indication: RENAL CANCER
     Dosage: ?          OTHER FREQUENCY:60 MIN EVERY 2 WEE;?
     Route: 048
     Dates: start: 20191227

REACTIONS (1)
  - Haemorrhage [None]
